FAERS Safety Report 7545869-7 (Version None)
Quarter: 2011Q2

REPORT INFORMATION
  Report Type: 
  Country: None (occurrence: None)
  Receive Date: 20110614
  Receipt Date: 20110601
  Transmission Date: 20111010
  Serious: Yes (Hospitalization)
  Sender: FDA-Public Use
  Company Number: JP-AMGEN-KDC442660

PATIENT
  Age: 39 Year
  Sex: Female
  Weight: 75.5 kg

DRUGS (7)
  1. CARVEDILOL [Concomitant]
     Dosage: 2.5 MG, BID
     Route: 048
     Dates: start: 20070224, end: 20110318
  2. LANSOPRAZOLE [Concomitant]
     Dosage: 30 MG, PRN
     Route: 048
     Dates: start: 20100419
  3. TAMBOCOR [Concomitant]
     Dosage: 50 MG, BID
     Route: 048
     Dates: start: 20070224, end: 20101108
  4. ALFAROL [Concomitant]
     Dosage: .25 A?G, QD
     Route: 048
     Dates: start: 20080630
  5. FERROUS CITRATE [Concomitant]
     Dosage: 50 MG, QD
     Route: 048
     Dates: start: 20080630
  6. ROMIPLOSTIM [Suspect]
     Indication: IDIOPATHIC THROMBOCYTOPENIC PURPURA
     Dosage: 8 UNK, UNK
     Dates: start: 20081216
  7. PREDNISOLONE [Concomitant]
     Dosage: 5 MG, QD
     Route: 048
     Dates: start: 20090901

REACTIONS (1)
  - DEEP VEIN THROMBOSIS [None]
